FAERS Safety Report 7065157-5 (Version None)
Quarter: 2010Q4

REPORT INFORMATION
  Report Type: 
  Country: None (occurrence: None)
  Receive Date: 20101022
  Receipt Date: 20101022
  Transmission Date: 20110411
  Serious: Yes (Life-Threatening, Hospitalization, Other)
  Sender: FDA-Public Use
  Company Number: None

PATIENT
  Sex: Male
  Weight: 77.1115 kg

DRUGS (1)
  1. PHENTERMINE [Suspect]
     Indication: BODY MASS INDEX INCREASED
     Dosage: 30 MG DAILY ORAL
     Route: 048
     Dates: start: 20100513, end: 20100821

REACTIONS (3)
  - AGITATION [None]
  - PARANOIA [None]
  - SUICIDE ATTEMPT [None]
